FAERS Safety Report 4398892-8 (Version None)
Quarter: 2004Q2

REPORT INFORMATION
  Report Type: 
  Country: None (occurrence: None)
  Receive Date: 20040621
  Receipt Date: 20031121
  Transmission Date: 20050107
  Serious: Yes (Death)
  Sender: FDA-Public Use
  Company Number: USA-2003-0007099

PATIENT
  Age: 46 Year
  Sex: Male
  Weight: 126.8 kg

DRUGS (7)
  1. OXYCONTIN [Suspect]
     Dosage: 40 MG, ORAL
     Route: 048
  2. EPHEDRINE (EPHEDRINE) [Suspect]
  3. PSEUDOEPHEDRINE HCL [Suspect]
  4. IBUPROFEN [Suspect]
  5. ACETAMINOPHEN [Suspect]
  6. CAFFEINE (CAFFEINE) [Suspect]
  7. NICOTINE [Suspect]

REACTIONS (1)
  - INTENTIONAL OVERDOSE [None]
